FAERS Safety Report 10492521 (Version 1)
Quarter: 2014Q4

REPORT INFORMATION
  Report Type: Spontaneous
  Country: US (occurrence: US)
  Receive Date: 20141002
  Receipt Date: 20141002
  Transmission Date: 20150528
  Serious: No
  Sender: FDA-Public Use
  Company Number: US-GLAXOSMITHKLINE-A1072146A

PATIENT
  Age: 61 Year
  Sex: Female

DRUGS (8)
  1. ADVAIR HFA [Suspect]
     Active Substance: FLUTICASONE PROPIONATE\SALMETEROL XINAFOATE
     Indication: ILL-DEFINED DISORDER
     Dosage: 1PUFF TWICE PER DAY
     Route: 055
     Dates: start: 20140502
  2. GABAPENTIN. [Concomitant]
     Active Substance: GABAPENTIN
  3. DIOVAN [Concomitant]
     Active Substance: VALSARTAN
  4. AZITHROMYCIN [Concomitant]
     Active Substance: AZITHROMYCIN ANHYDROUS
  5. LEVOTHYROXINE [Concomitant]
     Active Substance: LEVOTHYROXINE
  6. DICLOFENAC [Concomitant]
     Active Substance: DICLOFENAC
  7. ASPIRIN. [Concomitant]
     Active Substance: ASPIRIN
  8. TIZANIDINE (TIZANIDINE) [Concomitant]
     Active Substance: TIZANIDINE

REACTIONS (4)
  - Wheezing [Recovering/Resolving]
  - Drug administration error [Unknown]
  - Headache [Unknown]
  - Ill-defined disorder [Unknown]

NARRATIVE: CASE EVENT DATE: 20140502
